FAERS Safety Report 6030970-X (Version None)
Quarter: 2009Q1

REPORT INFORMATION
  Report Type: 
  Country: None (occurrence: None)
  Receive Date: 20090106
  Receipt Date: 20081222
  Transmission Date: 20090719
  Serious: Yes (Other)
  Sender: FDA-Public Use
  Company Number: 2009010001

PATIENT
  Age: 36 Year
  Sex: Female

DRUGS (3)
  1. ALLERGODIL [Suspect]
     Indication: RHINITIS SEASONAL
     Dosage: IN
     Route: 045
     Dates: start: 20080514, end: 20080519
  2. KESTINE [Suspect]
     Indication: RHINITIS SEASONAL
     Dosage: ORAL
     Route: 048
     Dates: start: 20080514, end: 20080519
  3. SYMBICORT [Suspect]
     Indication: RHINITIS SEASONAL
     Dosage: BU
     Route: 002
     Dates: start: 20080511, end: 20080519

REACTIONS (2)
  - DRUG EXPOSURE DURING PREGNANCY [None]
  - INTRA-UTERINE DEATH [None]
